FAERS Safety Report 6640365-3 (Version None)
Quarter: 2010Q1

REPORT INFORMATION
  Report Type: 
  Country: None (occurrence: None)
  Receive Date: 20100302
  Receipt Date: 20100211
  Transmission Date: 20100710
  Serious: No
  Sender: FDA-Public Use
  Company Number: 2010-00239

PATIENT
  Sex: Female

DRUGS (1)
  1. ZICAM EXTREME CONGESTION NASAL GEL [Suspect]
     Dosage: AS DIRECTED
     Dates: start: 20080601

REACTIONS (3)
  - AGEUSIA [None]
  - ANOSMIA [None]
  - NASAL DISCOMFORT [None]
